FAERS Safety Report 15274273 (Version 2)
Quarter: 2018Q3

REPORT INFORMATION
  Report Type: Spontaneous
  Country: US (occurrence: US)
  Receive Date: 20180814
  Receipt Date: 20180814
  Transmission Date: 20181010
  Serious: Yes (Death, Hospitalization, Other)
  Sender: FDA-Public Use
  Company Number: US-AUROBINDO-AUR-APL-2018-041055

PATIENT
  Age: 23 Year
  Sex: Female

DRUGS (4)
  1. PREDNISONE. [Suspect]
     Active Substance: PREDNISONE
     Indication: SYSTEMIC LUPUS ERYTHEMATOSUS
     Dosage: UNK
     Route: 065
  2. MYCOPHENOLATE [Suspect]
     Active Substance: MYCOPHENOLIC ACID
     Indication: SYSTEMIC LUPUS ERYTHEMATOSUS
     Dosage: UNK
     Route: 065
  3. MYCOPHENOLATE [Suspect]
     Active Substance: MYCOPHENOLIC ACID
     Indication: NEPHRITIS
  4. PREDNISONE. [Suspect]
     Active Substance: PREDNISONE
     Indication: NEPHRITIS

REACTIONS (10)
  - Mass [Unknown]
  - Multiple organ dysfunction syndrome [Fatal]
  - Renal failure [Unknown]
  - Atelectasis [Unknown]
  - Rash vesicular [Unknown]
  - Anaemia [Unknown]
  - Mucosal inflammation [Unknown]
  - Herpes zoster disseminated [Unknown]
  - Rash papular [Unknown]
  - Respiratory failure [Unknown]
